FAERS Safety Report 10204703 (Version 1)
Quarter: 2014Q2

REPORT INFORMATION
  Report Type: Spontaneous
  Country: JP (occurrence: None)
  Receive Date: 20140527
  Receipt Date: 20140527
  Transmission Date: 20141212
  Serious: Yes (Other)
  Sender: FDA-Public Use
  Company Number: JP-015787

PATIENT
  Age: 85 Year
  Sex: Male

DRUGS (7)
  1. DEGARELIX (GONAX) [Suspect]
     Indication: PRODUCT USED FOR UNKNOWN INDICATION
     Route: 058
  2. CASODEX [Suspect]
     Indication: PRODUCT USED FOR UNKNOWN INDICATION
     Route: 048
  3. PRAVASTATIN SODIUM [Concomitant]
  4. AZILSARTAN [Concomitant]
  5. NAFTOPIDIL [Concomitant]
  6. FAMOTIDINE [Concomitant]
  7. FEBUXOSTAT [Concomitant]

REACTIONS (2)
  - Interstitial lung disease [None]
  - Interstitial lung disease [None]
